FAERS Safety Report 14745064 (Version 5)
Quarter: 2018Q2

REPORT INFORMATION
  Report Type: Spontaneous
  Country: US (occurrence: US)
  Receive Date: 20180411
  Receipt Date: 20180601
  Transmission Date: 20180711
  Serious: No
  Sender: FDA-Public Use
  Company Number: US-PFIZER INC-2018145743

PATIENT
  Age: 71 Year
  Sex: Female

DRUGS (2)
  1. EUCRISA [Suspect]
     Active Substance: CRISABOROLE
     Dosage: UNK
     Route: 061
  2. EUCRISA [Suspect]
     Active Substance: CRISABOROLE
     Indication: ECZEMA
     Dosage: UNK, 2X/DAY
     Route: 061

REACTIONS (7)
  - Rash macular [Unknown]
  - Pruritus [Unknown]
  - Drug ineffective [Unknown]
  - Stress [Unknown]
  - Rash [Unknown]
  - Depression [Unknown]
  - Allergic reaction to excipient [Unknown]
